FAERS Safety Report 5965787-5 (Version None)
Quarter: 2008Q4

REPORT INFORMATION
  Report Type: 
  Country: None (occurrence: None)
  Receive Date: 20081121
  Receipt Date: 20080910
  Transmission Date: 20090506
  Serious: Yes (Hospitalization, Other)
  Sender: FDA-Public Use
  Company Number: PAR_02329_2008

PATIENT
  Sex: Female

DRUGS (8)
  1. IBUPROFEN [Suspect]
     Indication: PAIN
     Dosage: DF
  2. RIVAROXABAN 20 MG OR WARFARIN (1, 2.5, OR 5 MG) [Suspect]
     Indication: ACCIDENT
     Dosage: 1 DF QD ORAL
     Route: 048
     Dates: start: 20080507, end: 20080803
  3. RIVAROXABAN 20 MG OR WARFARIN (1, 2.5, OR 5 MG) [Suspect]
     Indication: EMBOLISM
     Dosage: 1 DF QD ORAL
     Route: 048
     Dates: start: 20080507, end: 20080803
  4. RIVAROXABAN 20 MG OR WARFARIN (1, 2.5, OR 5 MG) [Suspect]
     Indication: PROPHYLAXIS
     Dosage: 1 DF QD ORAL
     Route: 048
     Dates: start: 20080507, end: 20080803
  5. RIVAROXABAN 20 MG OR WARFARIN (1, 2.5 OR 5 MG) [Suspect]
     Indication: CEREBROVASCULAR ACCIDENT
     Dosage: 1 DF QD ORAL
     Route: 048
     Dates: start: 20080820
  6. RIVAROXABAN 20 MG OR WARFARIN (1, 2.5 OR 5 MG) [Suspect]
     Indication: EMBOLISM
     Dosage: 1 DF QD ORAL
     Route: 048
     Dates: start: 20080820
  7. RIVAROXABAN 20 MG OR WARFARIN (1, 2.5 OR 5 MG) [Suspect]
     Indication: PROPHYLAXIS
     Dosage: 1 DF QD ORAL
     Route: 048
     Dates: start: 20080820
  8. OLFEN [Concomitant]

REACTIONS (8)
  - ACTIVATED PARTIAL THROMBOPLASTIN TIME ABNORMAL [None]
  - HAEMARTHROSIS [None]
  - HAEMATOMA [None]
  - HAEMOGLOBIN DECREASED [None]
  - INTERNATIONAL NORMALISED RATIO DECREASED [None]
  - JOINT EFFUSION [None]
  - LEUKOCYTOSIS [None]
  - RED BLOOD CELL COUNT DECREASED [None]
